FAERS Safety Report 6630609-6 (Version None)
Quarter: 2010Q1

REPORT INFORMATION
  Report Type: 
  Country: None (occurrence: None)
  Receive Date: 20100311
  Receipt Date: 20090601
  Transmission Date: 20100710
  Serious: Yes (Hospitalization)
  Sender: FDA-Public Use
  Company Number: US-BIOGENIDEC-2009BI015707

PATIENT
  Age: 42 Year
  Sex: Male
  Weight: 102 kg

DRUGS (7)
  1. AVONEX [Suspect]
     Indication: MULTIPLE SCLEROSIS
     Route: 030
     Dates: start: 20090301
  2. AVONEX [Suspect]
     Route: 030
  3. AVONEX [Suspect]
     Route: 030
  4. AVONEX [Suspect]
     Route: 030
  5. KEPPRA [Concomitant]
     Indication: CONVULSION
     Route: 048
  6. KEPPRA [Concomitant]
     Route: 048
  7. TYLENOL-500 [Concomitant]
     Indication: PREMEDICATION

REACTIONS (2)
  - CONVULSION [None]
  - INFLUENZA LIKE ILLNESS [None]
